FAERS Safety Report 7213620-6 (Version None)
Quarter: 2010Q4

REPORT INFORMATION
  Report Type: 
  Country: None (occurrence: None)
  Receive Date: 20101229
  Receipt Date: 20101216
  Transmission Date: 20110411
  Serious: Yes (Hospitalization)
  Sender: FDA-Public Use
  Company Number: 023939

PATIENT
  Sex: Male

DRUGS (3)
  1. LACOSAMIDE [Suspect]
     Indication: CONVULSION
  2. RUFINAMIDE [Suspect]
  3. TOPIRAMATE [Concomitant]

REACTIONS (1)
  - ELECTROENCEPHALOGRAM ABNORMAL [None]
